FAERS Safety Report 11289448 (Version 1)
Quarter: 2015Q3

REPORT INFORMATION
  Report Type: Spontaneous
  Country: US (occurrence: US)
  Receive Date: 20150721
  Receipt Date: 20150721
  Transmission Date: 20151125
  Serious: No
  Sender: FDA-Public Use
  Company Number: US-GALDERMA-US15000364

PATIENT
  Age: 53 Year
  Sex: Female

DRUGS (4)
  1. ORACEA [Suspect]
     Active Substance: DOXYCYCLINE
     Indication: ROSACEA
     Route: 048
     Dates: start: 20140203
  2. ORACEA [Suspect]
     Active Substance: DOXYCYCLINE
     Dosage: 40 MG
     Route: 048
     Dates: start: 20150202
  3. ACZONE (DAPSONE) 5% [Concomitant]
     Dosage: 5 %
     Route: 061
     Dates: start: 201412
  4. METROGEL [Suspect]
     Active Substance: METRONIDAZOLE
     Indication: ROSACEA
     Dosage: 1%
     Route: 061
     Dates: start: 201412

REACTIONS (2)
  - Drug ineffective [Unknown]
  - Nausea [Recovered/Resolved]

NARRATIVE: CASE EVENT DATE: 201502
